FAERS Safety Report 7780036-3 (Version None)
Quarter: 2011Q3

REPORT INFORMATION
  Report Type: 
  Country: None (occurrence: None)
  Receive Date: 20110927
  Receipt Date: 20110922
  Transmission Date: 20111222
  Serious: Yes (Disabling, Other)
  Sender: FDA-Public Use
  Company Number: FR-PFIZER INC-2011165795

PATIENT
  Age: 64 Year
  Sex: Female
  Weight: 45 kg

DRUGS (7)
  1. SOTALOL HCL [Concomitant]
     Indication: VENTRICULAR EXTRASYSTOLES
     Dosage: 40 MG, 2X/DAY
     Route: 048
     Dates: start: 20101201
  2. MAGNE-B6 [Concomitant]
     Dosage: UNK
  3. ATORVASTATIN CALCIUM [Suspect]
     Indication: HYPERCHOLESTEROLAEMIA
     Dosage: 10 MG, 1X/DAY
     Route: 048
     Dates: start: 20101201, end: 20110721
  4. VITAMIN B3 [Concomitant]
     Dosage: UNK
  5. OROCAL D3 [Concomitant]
     Indication: OSTEOPOROSIS PROPHYLAXIS
     Dosage: 1 G TOTAL IN 2 INTAKES
     Route: 048
  6. LEXOMIL [Concomitant]
     Indication: ANXIETY
     Dosage: MAXIMUM 1 TABLET DAILY, SEVERAL INTAKES DAILY
     Route: 048
  7. ASPIRIN [Concomitant]
     Indication: ISCHAEMIC HEART DISEASE PROPHYLAXIS
     Dosage: 160 MG, 1X/DAY
     Route: 048
     Dates: start: 20101201

REACTIONS (11)
  - INTERVERTEBRAL DISC DISORDER [None]
  - RED BLOOD CELL SEDIMENTATION RATE INCREASED [None]
  - PAIN IN EXTREMITY [None]
  - EXOSTOSIS [None]
  - BACK PAIN [None]
  - SCOLIOSIS [None]
  - MUSCULOSKELETAL PAIN [None]
  - ARTHRITIS [None]
  - MYALGIA [None]
  - OSTEOARTHRITIS [None]
  - ROTATOR CUFF SYNDROME [None]
